FAERS Safety Report 9338957 (Version 2)
Quarter: 2013Q2

REPORT INFORMATION
  Report Type: Spontaneous
  Country: AU (occurrence: AU)
  Receive Date: 20130610
  Receipt Date: 20130626
  Transmission Date: 20140414
  Serious: Yes (Hospitalization)
  Sender: FDA-Public Use
  Company Number: PHHY2013AU056290

PATIENT
  Sex: Male

DRUGS (1)
  1. AMIODARONE [Suspect]
     Dosage: 400 MG, TID

REACTIONS (2)
  - Toxicity to various agents [Unknown]
  - Drug dispensing error [Unknown]
